FAERS Safety Report 12224880 (Version 3)
Quarter: 2016Q2

REPORT INFORMATION
  Report Type: Spontaneous
  Country: US (occurrence: US)
  Receive Date: 20160331
  Receipt Date: 20160509
  Transmission Date: 20160815
  Serious: No
  Sender: FDA-Public Use
  Company Number: US-PFIZER INC-2016157981

PATIENT
  Age: 76 Year
  Sex: Female
  Weight: 66.68 kg

DRUGS (9)
  1. OXYBUTYNIN [Concomitant]
     Active Substance: OXYBUTYNIN
     Indication: BLADDER DISORDER
     Dosage: 10 MG, 2X/DAY (TWO 5MG TABLETS))
     Route: 048
     Dates: start: 20021227
  2. CARVIDOL [Concomitant]
     Indication: BLOOD PRESSURE ABNORMAL
  3. EFFEXOR XR [Suspect]
     Active Substance: VENLAFAXINE HYDROCHLORIDE
     Indication: DEPRESSION
     Dosage: 150 MG, 1X/DAY
     Route: 048
     Dates: start: 20030803
  4. XALATAN [Suspect]
     Active Substance: LATANOPROST
     Indication: GLAUCOMA
     Dosage: 1 DF, 1X/DAY (125PG/2.5ML 1 DROP PER RIGHT EYE ONCE AT NIGHT) (0.00590)
     Dates: start: 20130422
  5. CARVIDOL [Concomitant]
     Indication: CARDIAC DISORDER
     Dosage: 12.5 MG, 2X/DAY
     Route: 048
     Dates: start: 20100226
  6. ATORVASTATIN [Concomitant]
     Active Substance: ATORVASTATIN
     Indication: CARDIAC DISORDER
     Dosage: 20 MG, 1X/DAY (AT BEDTIME)
     Route: 048
     Dates: start: 20120422
  7. TRAZODONE [Concomitant]
     Active Substance: TRAZODONE HYDROCHLORIDE
     Dosage: 150 MG, 1X/DAY (AT BEDTIME)
     Route: 048
     Dates: start: 20020122
  8. XALATAN [Suspect]
     Active Substance: LATANOPROST
     Indication: CATARACT
  9. ATORVASTATIN [Concomitant]
     Active Substance: ATORVASTATIN
     Indication: BLOOD PRESSURE ABNORMAL

REACTIONS (2)
  - Dysphonia [Unknown]
  - Nasopharyngitis [Not Recovered/Not Resolved]

NARRATIVE: CASE EVENT DATE: 20160314
